FAERS Safety Report 10688407 (Version 3)
Quarter: 2015Q1

REPORT INFORMATION
  Report Type: Report from Study
  Country: JP (occurrence: JP)
  Receive Date: 20150102
  Receipt Date: 20150115
  Transmission Date: 20150720
  Serious: Yes (Hospitalization)
  Sender: FDA-Public Use
  Company Number: JP-NAPPMUNDI-GBR-2014-0024748

PATIENT
  Age: 52 Year
  Sex: Female

DRUGS (12)
  1. PRINK [Concomitant]
     Indication: SPINAL LIGAMENT OSSIFICATION
     Dosage: UNK
  2. MINOPHAGEN C                       /00275201/ [Concomitant]
     Dosage: UNK
  3. SELBEX [Concomitant]
     Active Substance: TEPRENONE
     Indication: CHRONIC GASTRITIS
     Dosage: 3 DF, DAILY
     Route: 048
  4. OXYCONTIN [Suspect]
     Active Substance: OXYCODONE HYDROCHLORIDE
     Indication: PAIN
     Dosage: 70 MG, AM
     Route: 048
     Dates: start: 20141222
  5. MARZULENE S [Concomitant]
     Active Substance: GLUTAMINE\SODIUM GUALENATE
     Indication: CHRONIC GASTRITIS
     Dosage: 1.5 G, DAILY
     Route: 048
  6. OXYCONTIN [Suspect]
     Active Substance: OXYCODONE HYDROCHLORIDE
     Dosage: 140 MG, DAILY
     Route: 048
     Dates: start: 20140602, end: 20141221
  7. OXYCONTIN [Suspect]
     Active Substance: OXYCODONE HYDROCHLORIDE
     Dosage: 60 MG, DAILY
     Route: 048
     Dates: start: 20140528, end: 20140601
  8. MAGLAX [Concomitant]
     Active Substance: MAGNESIUM OXIDE
     Indication: CONSTIPATION
     Dosage: 990 MG, DAILY
     Route: 048
  9. PARIET [Concomitant]
     Active Substance: RABEPRAZOLE SODIUM
     Indication: CHRONIC GASTRITIS
     Dosage: 10 MG, DAILY
     Route: 048
  10. BOFUTSUSHOSAN [Concomitant]
     Indication: CONSTIPATION
     Dosage: 7.5 G, DAILY
     Route: 048
  11. FENTANYL. [Concomitant]
     Active Substance: FENTANYL
     Dosage: 12.6 MG, UNK
     Dates: start: 20141222
  12. XYLOCAINE [Concomitant]
     Active Substance: LIDOCAINE HYDROCHLORIDE
     Indication: SPINAL LIGAMENT OSSIFICATION
     Dosage: UNK

REACTIONS (1)
  - Cholelithiasis [Recovered/Resolved]

NARRATIVE: CASE EVENT DATE: 20141219
